FAERS Safety Report 5889962-3 (Version None)
Quarter: 2008Q3

REPORT INFORMATION
  Report Type: 
  Country: None (occurrence: None)
  Receive Date: 20080919
  Receipt Date: 20080908
  Transmission Date: 20090109
  Serious: Yes (Other)
  Sender: FDA-Public Use
  Company Number: BR-ROCHE-586863

PATIENT
  Age: 19 Year
  Sex: Male

DRUGS (2)
  1. ISOTRETINOIN [Suspect]
     Route: 065
  2. ISOTRETINOIN [Suspect]
     Dosage: REGIMEN SCALED UP.
     Route: 065

REACTIONS (1)
  - PYODERMA GANGRENOSUM [None]
